FAERS Safety Report 9853843 (Version 1)
Quarter: 2014Q1

REPORT INFORMATION
  Report Type: Report from Study
  Country: FR (occurrence: FR)
  Receive Date: 20140129
  Receipt Date: 20140129
  Transmission Date: 20141002
  Serious: Yes (Other)
  Sender: FDA-Public Use
  Company Number: FR-ALLERGAN-1401403US

PATIENT
  Age: 69 Year
  Sex: Female

DRUGS (15)
  1. DEX 0.7MG INS (9632X) [Suspect]
     Indication: RETINAL VEIN OCCLUSION
     Dosage: 0.7 MG, SINGLE
     Route: 031
     Dates: start: 20130916, end: 20130916
  2. DEX 0.7MG INS (9632X) [Suspect]
     Dosage: 0.7 MG, SINGLE
     Route: 031
     Dates: start: 20130513, end: 20130513
  3. DEX 0.7MG INS (9632X) [Suspect]
     Dosage: 0.7 MG, SINGLE
     Route: 031
     Dates: start: 20121221, end: 20121221
  4. DEX 0.7MG INS (9632X) [Suspect]
     Dosage: 0.7 MG, SINGLE
     Route: 031
     Dates: start: 20120402, end: 20120402
  5. DEX 0.7MG INS (9632X) [Suspect]
     Dosage: 0.7 MG, SINGLE
     Route: 031
     Dates: start: 20111202, end: 20111202
  6. KARDEGIC [Suspect]
     Route: 048
  7. NEBIVOLOL [Concomitant]
     Route: 048
  8. EUPRESSYL [Concomitant]
     Route: 048
  9. CO-APPROVEL [Concomitant]
     Route: 048
  10. SIMVASTATIN [Concomitant]
     Route: 048
  11. LANSOPRAZOLE [Concomitant]
     Route: 048
  12. CALCIUM [Concomitant]
     Route: 048
  13. UVEDOSE [Concomitant]
     Route: 048
  14. LEVOTHYROX [Concomitant]
     Route: 048
  15. CHONDROSULF [Concomitant]
     Route: 048

REACTIONS (1)
  - Vitreous haemorrhage [Recovered/Resolved]
